FAERS Safety Report 17463775 (Version 1)
Quarter: 2020Q1

REPORT INFORMATION
  Report Type: Spontaneous
  Country: US (occurrence: US)
  Receive Date: 20200226
  Receipt Date: 20200226
  Transmission Date: 20200409
  Serious: No
  Sender: FDA-Public Use
  Company Number: US-SCIEGEN PHARMACEUTICALS INC-2020SCISPO00056

PATIENT

DRUGS (1)
  1. ARIPIPRAZOLE. [Suspect]
     Active Substance: ARIPIPRAZOLE

REACTIONS (2)
  - Product use in unapproved indication [None]
  - Cardiac disorder [Unknown]

NARRATIVE: CASE EVENT DATE: 20200204
